FAERS Safety Report 12684204 (Version 1)
Quarter: 2016Q3

REPORT INFORMATION
  Report Type: Spontaneous
  Country: US (occurrence: US)
  Receive Date: 20160825
  Receipt Date: 20160825
  Transmission Date: 20161109
  Serious: No
  Sender: FDA-Public Use
  Company Number: US-SHIRE-US201610189

PATIENT
  Age: 44 Year
  Sex: Male

DRUGS (3)
  1. FOSRENOL [Suspect]
     Active Substance: LANTHANUM CARBONATE
     Dosage: 2000 MG, OTHER (WHEN HE EATS A BIG MEAL)
     Route: 048
     Dates: start: 201601
  2. FOSRENOL [Suspect]
     Active Substance: LANTHANUM CARBONATE
     Indication: END STAGE RENAL DISEASE
     Dosage: 1000 MG, 3X/DAY:TID
     Route: 048
     Dates: start: 201601
  3. FOSRENOL [Suspect]
     Active Substance: LANTHANUM CARBONATE
     Dosage: 500 MG, OTHER (WITH SNACK OR DRINKS HIGH IN PHOSPHORUS)
     Route: 048
     Dates: start: 201601

REACTIONS (2)
  - Incorrect dose administered [Not Recovered/Not Resolved]
  - Blood phosphorus increased [Not Recovered/Not Resolved]

NARRATIVE: CASE EVENT DATE: 201601
